FAERS Safety Report 8058358-0 (Version None)
Quarter: 2012Q1

REPORT INFORMATION
  Report Type: 
  Country: None (occurrence: None)
  Receive Date: 20120120
  Receipt Date: 20120118
  Transmission Date: 20120608
  Serious: Yes (Life-Threatening, Other)
  Sender: FDA-Public Use
  Company Number: US-ELI_LILLY_AND_COMPANY-US201112001908

PATIENT
  Age: 17 Year
  Sex: Male
  Weight: 61.224 kg

DRUGS (4)
  1. ADDERALL 5 [Concomitant]
     Dosage: UNK
     Dates: start: 20111113
  2. STRATTERA [Suspect]
     Dosage: 1 DF, EACH MORNING
     Dates: start: 20111103
  3. STRATTERA [Suspect]
     Indication: ATTENTION DEFICIT/HYPERACTIVITY DISORDER
     Dosage: 60 MG, EACH MORNING
  4. MARIJUANA [Concomitant]
     Dosage: UNK
     Dates: start: 20111113

REACTIONS (3)
  - OFF LABEL USE [None]
  - SUPRAVENTRICULAR TACHYCARDIA [None]
  - INTENTIONAL DRUG MISUSE [None]
